FAERS Safety Report 5078681-1 (Version None)
Quarter: 2006Q3

REPORT INFORMATION
  Report Type: 
  Country: None (occurrence: None)
  Receive Date: 20060809
  Receipt Date: 20060809
  Transmission Date: 20061208
  Serious: Yes (Disabling)
  Sender: FDA-Public Use
  Company Number: None

PATIENT
  Age: 22 Year
  Sex: Female
  Weight: 74.8435 kg

DRUGS (2)
  1. KEPPRA [Suspect]
     Indication: CONVULSION
     Dosage: 2000 MG BID PO
     Route: 048
     Dates: start: 20020101, end: 20060808
  2. KEPPRA [Suspect]

REACTIONS (6)
  - ABNORMAL BEHAVIOUR [None]
  - HALLUCINATION, AUDITORY [None]
  - HALLUCINATION, VISUAL [None]
  - OBSESSIVE THOUGHTS [None]
  - SUICIDAL IDEATION [None]
  - THINKING ABNORMAL [None]
